FAERS Safety Report 6764040-X (Version None)
Quarter: 2010Q2

REPORT INFORMATION
  Report Type: 
  Country: None (occurrence: None)
  Receive Date: 20100610
  Receipt Date: 20091113
  Transmission Date: 20101027
  Serious: No
  Sender: FDA-Public Use
  Company Number: US-ASTRAZENECA-2009SE26348

PATIENT
  Age: 70 Year
  Sex: Female

DRUGS (2)
  1. FASLODEX [Suspect]
     Indication: BREAST CANCER
     Dosage: 250 MG/5 ML MONTHLY
     Route: 030
     Dates: start: 20090101
  2. RADIOTHERAPY [Concomitant]
     Indication: BONE NEOPLASM MALIGNANT

REACTIONS (1)
  - MYOSITIS [None]
